FAERS Safety Report 5365078-X (Version None)
Quarter: 2007Q2

REPORT INFORMATION
  Report Type: 
  Country: None (occurrence: None)
  Receive Date: 20070530
  Receipt Date: 20070319
  Transmission Date: 20071010
  Serious: Yes (Hospitalization)
  Sender: FDA-Public Use
  Company Number: 2007PV032004

PATIENT
  Age: 45 Year
  Sex: Male

DRUGS (3)
  1. BYETTA [Suspect]
     Indication: DIABETES MELLITUS NON-INSULIN-DEPENDENT
     Dosage: 5 MCG BID SC
     Route: 058
     Dates: start: 20061201
  2. LISINOPRIL [Suspect]
     Indication: PROPHYLAXIS
  3. LISINOPRIL [Suspect]
     Indication: RENAL DISORDER

REACTIONS (2)
  - INJECTION SITE BRUISING [None]
  - PANCREATITIS [None]
